FAERS Safety Report 18861942 (Version 2)
Quarter: 2021Q1

REPORT INFORMATION
  Report Type: Report from Study
  Country: US (occurrence: US)
  Receive Date: 20210208
  Receipt Date: 20210219
  Transmission Date: 20210420
  Serious: Yes (Hospitalization)
  Sender: FDA-Public Use
  Company Number: NVSC2020US244861

PATIENT
  Sex: Male

DRUGS (9)
  1. PREDNISONE. [Suspect]
     Active Substance: PREDNISONE
     Indication: ACUTE LYMPHOCYTIC LEUKAEMIA
     Dosage: 32.5 MILLIGRAM, BID (MC1 D1?5, 29?33)
     Route: 048
     Dates: start: 20200714
  2. MERCAPTOPURINE. [Suspect]
     Active Substance: MERCAPTOPURINE
     Dosage: 125 MILLIGRAM, QD (MC1 D1?40)
     Route: 048
     Dates: start: 20200915
  3. INC424A [Suspect]
     Active Substance: RUXOLITINIB
     Indication: ACUTE LYMPHOCYTIC LEUKAEMIA
     Dosage: 75 MILLIGRAM, BID (IM1 D1?14, 29?42)
     Route: 048
     Dates: start: 20190802, end: 20191225
  4. METHOTREXATE. [Suspect]
     Active Substance: METHOTREXATE
     Dosage: UNK
     Route: 037
     Dates: start: 20200714
  5. INC424A [Suspect]
     Active Substance: RUXOLITINIB
     Dosage: 85 MILLIGRAM, BID (MC1 D1?14, 29?40)
     Route: 048
     Dates: start: 20200714
  6. VINCRISTINE [Suspect]
     Active Substance: VINCRISTINE
     Indication: ACUTE LYMPHOCYTIC LEUKAEMIA
     Dosage: 2 MILLIGRAM (MC1 D1, 29, 57)
     Route: 042
     Dates: start: 20200714
  7. INC424A [Suspect]
     Active Substance: RUXOLITINIB
     Dosage: 80 MILLIGRAM, BID (C D1?14, 29?42; DI D1?14)
     Route: 048
     Dates: start: 20191030, end: 20200709
  8. METHOTREXATE. [Suspect]
     Active Substance: METHOTREXATE
     Indication: ACUTE LYMPHOCYTIC LEUKAEMIA
     Dosage: 33.75 MILLIGRAM (MC1 D8, 15, 22, 36)
     Route: 048
     Dates: start: 20200721
  9. MERCAPTOPURINE. [Suspect]
     Active Substance: MERCAPTOPURINE
     Indication: ACUTE LYMPHOCYTIC LEUKAEMIA
     Dosage: 125 MILLIGRAM, QD (MC1 D1?40)
     Route: 048
     Dates: start: 20200714, end: 20200821

REACTIONS (1)
  - Febrile neutropenia [Recovered/Resolved]

NARRATIVE: CASE EVENT DATE: 20200825
